FAERS Safety Report 7716984-X (Version None)
Quarter: 2011Q3

REPORT INFORMATION
  Report Type: 
  Country: None (occurrence: None)
  Receive Date: 20110829
  Receipt Date: 20110817
  Transmission Date: 20111222
  Serious: Yes (Hospitalization)
  Sender: FDA-Public Use
  Company Number: CA-GENENTECH-323499

PATIENT
  Sex: Male

DRUGS (1)
  1. XOLAIR [Suspect]
     Indication: ASTHMA
     Dosage: 300 MG, Q4W
     Route: 058
     Dates: start: 20071022

REACTIONS (4)
  - OXYGEN SATURATION DECREASED [None]
  - WHEEZING [None]
  - RESPIRATORY FAILURE [None]
  - DYSPNOEA [None]
